FAERS Safety Report 7091428-2 (Version None)
Quarter: 2010Q4

REPORT INFORMATION
  Report Type: 
  Country: None (occurrence: None)
  Receive Date: 20101109
  Receipt Date: 20101101
  Transmission Date: 20110411
  Serious: Yes (Other)
  Sender: FDA-Public Use
  Company Number: US-ABBOTT-10P-163-0682681-00

PATIENT
  Age: 23 Year
  Sex: Female

DRUGS (1)
  1. LUPRON [Suspect]
     Indication: ENDOMETRIOSIS

REACTIONS (3)
  - ENDOMETRIOSIS [None]
  - HOT FLUSH [None]
  - PAIN [None]
